FAERS Safety Report 4630210-X (Version None)
Quarter: 2005Q2

REPORT INFORMATION
  Report Type: 
  Country: None (occurrence: None)
  Receive Date: 20050408
  Receipt Date: 20050324
  Transmission Date: 20051028
  Serious: Yes (Other)
  Sender: FDA-Public Use
  Company Number: US-BOEHRINGER INGELHEIM PHARMACEUTICALS, INC.-2005-DE-01218GD

PATIENT
  Age: 8 Year
  Sex: Male

DRUGS (8)
  1. NEVIRAPINE [Suspect]
     Indication: HIV INFECTION
  2. D4T [Suspect]
     Indication: HIV INFECTION
  3. DDC [Suspect]
     Indication: HIV INFECTION
  4. AMPRENAVIR [Suspect]
     Indication: HIV INFECTION
  5. TRIMETHOPRIM-SULFAMETHOXAZOLE [Concomitant]
  6. AMPHOTERICIN B [Concomitant]
  7. FLUCONAZOLE [Concomitant]
  8. GANCICLOVIR [Concomitant]

REACTIONS (4)
  - HEPATITIS [None]
  - PANCREATITIS [None]
  - PYREXIA [None]
  - RASH [None]
